FAERS Safety Report 24422784 (Version 3)
Quarter: 2025Q1

REPORT INFORMATION
  Report Type: Spontaneous
  Country: US (occurrence: US)
  Receive Date: 20241010
  Receipt Date: 20250211
  Transmission Date: 20250409
  Serious: Yes (Hospitalization)
  Sender: VERTEX
  Company Number: US-VERTEX PHARMACEUTICALS-2024-015751

PATIENT
  Age: 20 Year
  Sex: Female

DRUGS (2)
  1. TRIKAFTA [Suspect]
     Active Substance: ELEXACAFTOR\IVACAFTOR\TEZACAFTOR
     Indication: Cystic fibrosis
     Route: 048
  2. METAMUCIL [Concomitant]
     Active Substance: PLANTAGO SEED

REACTIONS (13)
  - Hospitalisation [Unknown]
  - Distal intestinal obstruction syndrome [Not Recovered/Not Resolved]
  - Gastrointestinal pain [Unknown]
  - Vomiting [Unknown]
  - Weight loss poor [Not Recovered/Not Resolved]
  - Constipation [Not Recovered/Not Resolved]
  - Weight increased [Not Recovered/Not Resolved]
  - Asthenia [Not Recovered/Not Resolved]
  - Gastrooesophageal reflux disease [Not Recovered/Not Resolved]
  - Mental disorder [Not Recovered/Not Resolved]
  - Impaired gastric emptying [Not Recovered/Not Resolved]
  - Stress [Not Recovered/Not Resolved]
  - Hypoglycaemia [Unknown]
